FAERS Safety Report 19802226 (Version 1)
Quarter: 2021Q3

REPORT INFORMATION
  Report Type: Spontaneous
  Country: US (occurrence: US)
  Receive Date: 20210907
  Receipt Date: 20210907
  Transmission Date: 20211014
  Serious: No
  Sender: FDA-Public Use
  Company Number: None

PATIENT
  Age: 72 Year
  Sex: Female

DRUGS (7)
  1. INLYTA [Suspect]
     Active Substance: AXITINIB
     Indication: RENAL CANCER
     Dates: start: 20210603, end: 20210907
  2. HYDROXYZINE 25 MG [Concomitant]
     Active Substance: HYDROXYZINE HYDROCHLORIDE
  3. NORCO 5?325 MG [Concomitant]
  4. ACETAMINOPHEN 325MG [Concomitant]
  5. POTASSIUM 99MG [Concomitant]
  6. SIMVASTATIN 20 MG [Concomitant]
     Active Substance: SIMVASTATIN
  7. CALCIUM WITH VITAMIN D [Concomitant]
     Active Substance: CALCIUM\VITAMIN D

REACTIONS (2)
  - Diarrhoea [None]
  - Nausea [None]

NARRATIVE: CASE EVENT DATE: 20210907
